FAERS Safety Report 6695825-6 (Version None)
Quarter: 2010Q2

REPORT INFORMATION
  Report Type: 
  Country: None (occurrence: None)
  Receive Date: 20100423
  Receipt Date: 20100423
  Transmission Date: 20101027
  Serious: Yes (Other)
  Sender: FDA-Public Use
  Company Number: None

PATIENT
  Age: 36 Year
  Sex: Female
  Weight: 95.2554 kg

DRUGS (1)
  1. VITAMIN D [Suspect]
     Indication: VITAMIN D DECREASED
     Dosage: 1 SOFT GEL 1 X PER WEEK PO
     Route: 048
     Dates: start: 20100407, end: 20100414

REACTIONS (7)
  - FATIGUE [None]
  - FEELING ABNORMAL [None]
  - MENTAL DISORDER [None]
  - MOOD ALTERED [None]
  - MUSCLE SPASMS [None]
  - MYALGIA [None]
  - PALPITATIONS [None]
